FAERS Safety Report 4476615-1 (Version None)
Quarter: 2004Q4

REPORT INFORMATION
  Report Type: 
  Country: None (occurrence: None)
  Receive Date: 20041013
  Receipt Date: 20040923
  Transmission Date: 20050328
  Serious: Yes (Other)
  Sender: FDA-Public Use
  Company Number: USA040979080

PATIENT
  Age: 49 Year
  Sex: Male

DRUGS (8)
  1. XIGRIS [Suspect]
     Indication: SEPSIS
     Dosage: 240 MG
     Dates: start: 20040914, end: 20040918
  2. LEVAQUIN [Concomitant]
  3. ZOSYN [Concomitant]
  4. SOLU-MEDROL [Concomitant]
  5. LIPITOR [Concomitant]
  6. DOPAMINE HCL [Concomitant]
  7. ALBUTEROL [Concomitant]
  8. FLOVENT [Concomitant]

REACTIONS (2)
  - CONDITION AGGRAVATED [None]
  - SEPSIS [None]
